FAERS Safety Report 21975396 (Version 1)
Quarter: 2023Q1

REPORT INFORMATION
  Report Type: Spontaneous
  Country: US (occurrence: US)
  Receive Date: 20230210
  Receipt Date: 20230210
  Transmission Date: 20230417
  Serious: Yes (Other)
  Sender: FDA-Public Use
  Company Number: US-BRISTOL-MYERS SQUIBB COMPANY-2023-019018

PATIENT
  Age: 84 Year
  Sex: Female

DRUGS (1)
  1. ELIQUIS [Suspect]
     Active Substance: APIXABAN
     Indication: Product used for unknown indication
     Route: 048

REACTIONS (10)
  - Respiratory disorder [Unknown]
  - Headache [Unknown]
  - Thyroid disorder [Unknown]
  - Spleen disorder [Unknown]
  - Irritable bowel syndrome [Unknown]
  - Urinary tract infection [Unknown]
  - Tooth disorder [Unknown]
  - Facial bones fracture [Unknown]
  - Eye disorder [Unknown]
  - Tooth fracture [Unknown]
